FAERS Safety Report 7596619-X (Version None)
Quarter: 2011Q3

REPORT INFORMATION
  Report Type: 
  Country: None (occurrence: None)
  Receive Date: 20110708
  Receipt Date: 20110624
  Transmission Date: 20111222
  Serious: Yes (Hospitalization, Other)
  Sender: FDA-Public Use
  Company Number: US-ELI_LILLY_AND_COMPANY-US201007003914

PATIENT
  Sex: Female

DRUGS (14)
  1. KLONOPIN [Concomitant]
  2. LYRICA [Concomitant]
     Dosage: UNK
     Dates: start: 20110501
  3. FORTEO [Suspect]
     Indication: OSTEOPOROSIS
     Dosage: 20 UG, QD
     Route: 065
  4. FORTEO [Suspect]
     Dosage: 20 UG, QD
     Route: 065
  5. PRILOSEC [Concomitant]
  6. LISINOPRIL [Concomitant]
  7. FORTEO [Suspect]
     Dosage: 20 UG, QD
     Route: 065
  8. BENTYL [Concomitant]
     Dosage: UNK, PRN
  9. CELEXA [Concomitant]
  10. ASCORBIC ACID [Concomitant]
  11. VITAMIN D [Concomitant]
  12. FORTEO [Suspect]
     Dosage: 20 UG, QD
     Route: 065
  13. FORTEO [Suspect]
     Dosage: 20 UG, QD
     Route: 065
  14. LUNESTA [Concomitant]

REACTIONS (29)
  - DEHYDRATION [None]
  - PAIN IN EXTREMITY [None]
  - FALL [None]
  - HEADACHE [None]
  - ARTHRALGIA [None]
  - CONTUSION [None]
  - FATIGUE [None]
  - PYREXIA [None]
  - DIARRHOEA [None]
  - VOMITING [None]
  - BACK PAIN [None]
  - PRURITUS [None]
  - PHARYNGITIS [None]
  - BRONCHITIS [None]
  - ACUTE RESPIRATORY FAILURE [None]
  - RESPIRATORY FAILURE [None]
  - FEELING DRUNK [None]
  - MUSCULOSKELETAL PAIN [None]
  - PNEUMONIA [None]
  - PAIN [None]
  - DYSURIA [None]
  - SCRATCH [None]
  - ROTATOR CUFF SYNDROME [None]
  - MOVEMENT DISORDER [None]
  - NEUROPATHY PERIPHERAL [None]
  - MUSCLE SPASMS [None]
  - OXYGEN SATURATION DECREASED [None]
  - INJECTION SITE HAEMORRHAGE [None]
  - ASTHENIA [None]
